FAERS Safety Report 21402256 (Version 2)
Quarter: 2022Q4

REPORT INFORMATION
  Report Type: Spontaneous
  Country: JP (occurrence: JP)
  Receive Date: 20221003
  Receipt Date: 20221102
  Transmission Date: 20230113
  Serious: Yes (Hospitalization, Other)
  Sender: FDA-Public Use
  Company Number: JP-002147023-NVSJ2022JP098002

PATIENT
  Age: 75 Year
  Sex: Female

DRUGS (4)
  1. XOLAIR [Suspect]
     Active Substance: OMALIZUMAB
     Indication: Asthma
     Dosage: 300 MG, 4W
     Route: 058
  2. RINDERON [Concomitant]
     Indication: Asthma
     Dosage: 16 MG, QD
  3. RINDERON [Concomitant]
     Dosage: 32 MG, QD
  4. RINDERON [Concomitant]
     Dosage: 2 MG, QD

REACTIONS (2)
  - Asthma [Recovering/Resolving]
  - Pneumonia aspiration [Recovered/Resolved]
